FAERS Safety Report 8980983 (Version 2)
Quarter: 2012Q4

REPORT INFORMATION
  Report Type: Report from Study
  Country: CA (occurrence: CA)
  Receive Date: 20121221
  Receipt Date: 20121228
  Transmission Date: 20130627
  Serious: Yes (Hospitalization)
  Sender: FDA-Public Use
  Company Number: CA-ABBOTT-12P-028-1024399-00

PATIENT
  Age: 84 Year
  Sex: Male
  Weight: 84 kg

DRUGS (13)
  1. LUPRON DEPOT [Suspect]
     Indication: PROSTATE CANCER
     Route: 030
     Dates: start: 20110912
  2. MELOXICAM [Suspect]
     Indication: PELVIC PAIN
     Dates: start: 20121201, end: 20121210
  3. ROSUVASTATINE [Concomitant]
     Indication: PRODUCT USED FOR UNKNOWN INDICATION
     Dosage: 40mg every night
     Route: 048
     Dates: start: 20121212
  4. TELMISARTAN [Concomitant]
     Indication: PRODUCT USED FOR UNKNOWN INDICATION
     Route: 048
     Dates: start: 20121211
  5. METOPROLOL TARTRATE [Concomitant]
     Indication: PRODUCT USED FOR UNKNOWN INDICATION
     Route: 048
     Dates: start: 20121211
  6. VERSED [Concomitant]
     Indication: OESOPHAGOGASTRODUODENOSCOPY
     Route: 042
  7. FENTANYL [Concomitant]
     Indication: OESOPHAGOGASTRODUODENOSCOPY
     Route: 042
  8. CASODEX [Concomitant]
     Indication: PRODUCT USED FOR UNKNOWN INDICATION
  9. CASODEX [Concomitant]
     Indication: PRODUCT USED FOR UNKNOWN INDICATION
  10. CRESTOR [Concomitant]
     Indication: PRODUCT USED FOR UNKNOWN INDICATION
  11. METOPROLOL [Concomitant]
     Indication: PRODUCT USED FOR UNKNOWN INDICATION
  12. OXAZEPAM [Concomitant]
     Indication: PRODUCT USED FOR UNKNOWN INDICATION
  13. OXYCODONE [Concomitant]
     Indication: PRODUCT USED FOR UNKNOWN INDICATION

REACTIONS (5)
  - Gastric ulcer [Recovering/Resolving]
  - Epigastric discomfort [Unknown]
  - Haematemesis [Unknown]
  - Gastrointestinal haemorrhage [Recovered/Resolved]
  - Pelvic pain [Unknown]
